FAERS Safety Report 5783497-4 (Version None)
Quarter: 2008Q2

REPORT INFORMATION
  Report Type: 
  Country: None (occurrence: None)
  Receive Date: 20080619
  Receipt Date: 20080606
  Transmission Date: 20081010
  Serious: Yes (Other)
  Sender: FDA-Public Use
  Company Number: DSA_31901_2008

PATIENT
  Age: 65 Year
  Sex: Male

DRUGS (7)
  1. ENALAPRIL MALEATE [Suspect]
     Indication: DRUG USE FOR UNKNOWN INDICATION
     Dosage: (5 MG QD ORAL)
     Route: 048
     Dates: start: 20060101, end: 20080101
  2. BISOPROLOL (BISOPROLOL) 2.5 MG [Suspect]
     Indication: DRUG USE FOR UNKNOWN INDICATION
     Dosage: (2.5 MG QD ORAL)
     Route: 048
     Dates: start: 20060101
  3. SELENIUM [Concomitant]
  4. ASCORBIC ACID [Concomitant]
  5. MAGNESIUM [Concomitant]
  6. ZINC [Concomitant]
  7. GINKGO [Concomitant]

REACTIONS (1)
  - MYCOSIS FUNGOIDES [None]
